FAERS Safety Report 24221331 (Version 1)
Quarter: 2024Q3

REPORT INFORMATION
  Report Type: Spontaneous
  Country: US (occurrence: US)
  Receive Date: 20240819
  Receipt Date: 20240819
  Transmission Date: 20241016
  Serious: Yes (Hospitalization, Other)
  Sender: NOVO NORDISK
  Company Number: US-NOVOPROD-1268442

PATIENT
  Sex: Male

DRUGS (2)
  1. OZEMPIC [Suspect]
     Active Substance: SEMAGLUTIDE
     Indication: Product used for unknown indication
     Dosage: UNK
     Route: 058
  2. OFEV [Suspect]
     Active Substance: NINTEDANIB
     Indication: Pulmonary fibrosis
     Dosage: 150 MG, BID
     Route: 048

REACTIONS (6)
  - Localised infection [Recovered/Resolved]
  - Cholecystectomy [Unknown]
  - Decreased appetite [Unknown]
  - Abdominal pain upper [Unknown]
  - Diarrhoea [Recovered/Resolved]
  - Flatulence [Unknown]
